FAERS Safety Report 7917706 (Version 4)
Quarter: 2013Q1

REPORT INFORMATION
  Report Type: Spontaneous
  Country: US (occurrence: US)
  Receive Date: 20110428
  Receipt Date: 20130211
  Transmission Date: 20140127
  Serious: Yes (Other)
  Sender: FDA-Public Use
  Company Number: US-JNJFOC-20100806103

PATIENT
  Sex: Male

DRUGS (1)
  1. LEVOFLOXACIN [Suspect]
     Indication: PRODUCT USED FOR UNKNOWN INDICATION
     Route: 048
     Dates: start: 19990101, end: 20011231

REACTIONS (5)
  - Tendon rupture [Unknown]
  - Muscle rupture [Unknown]
  - Joint injury [Unknown]
  - Joint injury [Unknown]
  - Tendonitis [Unknown]
